FAERS Safety Report 5705806-4 (Version None)
Quarter: 2008Q2

REPORT INFORMATION
  Report Type: 
  Country: None (occurrence: None)
  Receive Date: 20080414
  Receipt Date: 20080414
  Transmission Date: 20081010
  Serious: Yes (Disabling)
  Sender: FDA-Public Use
  Company Number: None

PATIENT
  Age: 63 Year
  Sex: Male

DRUGS (1)
  1. PHENYTOIN SODIUM [Suspect]
     Indication: EPILEPSY
     Dosage: 100MG 5/DAY DIVIDED PO
     Route: 048
     Dates: start: 20080317, end: 20080410

REACTIONS (2)
  - ATAXIA [None]
  - DRUG LEVEL INCREASED [None]
